FAERS Safety Report 8539334-8 (Version None)
Quarter: 2012Q3

REPORT INFORMATION
  Report Type: 
  Country: None (occurrence: None)
  Receive Date: 20120726
  Receipt Date: 20111010
  Transmission Date: 20120928
  Serious: No
  Sender: FDA-Public Use
  Company Number: US-ASTRAZENECA-2011SE44244

PATIENT
  Age: 63 Year
  Sex: Male

DRUGS (2)
  1. SEROQUEL XR [Suspect]
     Indication: BIPOLAR I DISORDER
     Route: 048
     Dates: start: 20110716
  2. SEROQUEL XR [Suspect]
     Route: 048

REACTIONS (5)
  - ACTIVITIES OF DAILY LIVING IMPAIRED [None]
  - THIRST [None]
  - SOMNOLENCE [None]
  - MOBILITY DECREASED [None]
  - FATIGUE [None]
